FAERS Safety Report 21402562 (Version 2)
Quarter: 2022Q4

REPORT INFORMATION
  Report Type: Spontaneous
  Country: BR (occurrence: None)
  Receive Date: 20221003
  Receipt Date: 20221007
  Transmission Date: 20230112
  Serious: Yes (Other)
  Sender: FDA-Public Use
  Company Number: BR-ROCHE-3188452

PATIENT
  Weight: 75 kg

DRUGS (2)
  1. ACTEMRA [Suspect]
     Active Substance: TOCILIZUMAB
     Indication: Rheumatoid arthritis
     Route: 042
  2. ARAVA [Concomitant]
     Active Substance: LEFLUNOMIDE

REACTIONS (11)
  - Diabetes mellitus [Recovered/Resolved]
  - Pulmonary mass [Recovered/Resolved]
  - Cataract [Recovered/Resolved]
  - Hypertension [Recovered/Resolved]
  - Impaired work ability [Recovered/Resolved]
  - Fall [Unknown]
  - Arthropathy [Recovered/Resolved]
  - Joint effusion [Recovered/Resolved]
  - Weight decreased [Recovered/Resolved]
  - Pain in extremity [Recovered/Resolved]
  - Femur fracture [Recovered/Resolved]
